FAERS Safety Report 14959143 (Version 1)
Quarter: 2018Q2

REPORT INFORMATION
  Report Type: Spontaneous
  Country: FR (occurrence: FR)
  Receive Date: 20180531
  Receipt Date: 20180531
  Transmission Date: 20180711
  Serious: Yes (Hospitalization)
  Sender: FDA-Public Use
  Company Number: FR-TEVA-2018-FR-899229

PATIENT
  Age: 68 Year
  Sex: Female
  Weight: 105 kg

DRUGS (5)
  1. ACTISKENAN 10 MG, G?LULE [Suspect]
     Active Substance: MORPHINE SULFATE
     Indication: INTENTIONAL OVERDOSE
     Dosage: QUANTIT? SUPPOS?E ING?R?E : 1 BO?TE
     Route: 048
     Dates: start: 20170427, end: 20170427
  2. SERTRALINE [Suspect]
     Active Substance: SERTRALINE HYDROCHLORIDE
     Indication: INTENTIONAL OVERDOSE
     Dosage: DOSE INCONNUE
     Route: 048
     Dates: start: 20170427, end: 20170427
  3. ALPRAZOLAM. [Suspect]
     Active Substance: ALPRAZOLAM
     Indication: INTENTIONAL OVERDOSE
     Dosage: PLUSIEURS BOITES (DOSE INCONNUE)
     Route: 048
     Dates: start: 20170427, end: 20170427
  4. IMOVANE [Suspect]
     Active Substance: ZOPICLONE
     Indication: INTENTIONAL OVERDOSE
     Dosage: DOSE INCONNUE
     Route: 048
     Dates: start: 20170427, end: 20170427
  5. SKENAN [Suspect]
     Active Substance: MORPHINE SULFATE
     Indication: INTENTIONAL OVERDOSE
     Dosage: QUANTIT? SUPPOS?E ING?R?E 1 BO?TE
     Route: 048
     Dates: start: 20170427, end: 20170427

REACTIONS (5)
  - Toxicity to various agents [Recovered/Resolved]
  - Bradypnoea [Recovered/Resolved]
  - Coma [Recovered/Resolved]
  - Bradycardia [Recovered/Resolved]
  - Hypotension [Recovered/Resolved]

NARRATIVE: CASE EVENT DATE: 20170427
